FAERS Safety Report 5856220-2 (Version None)
Quarter: 2008Q3

REPORT INFORMATION
  Report Type: 
  Country: None (occurrence: None)
  Receive Date: 20080825
  Receipt Date: 20080820
  Transmission Date: 20090109
  Serious: Yes (Other)
  Sender: FDA-Public Use
  Company Number: A0744044A

PATIENT
  Age: 49 Year
  Sex: Female
  Weight: 79.5 kg

DRUGS (6)
  1. AVANDIA [Suspect]
     Dosage: 2MG TWICE PER DAY
     Route: 048
  2. AVANDAMET [Suspect]
     Route: 048
  3. METOPROLOL TARTRATE [Concomitant]
     Dates: start: 20060101
  4. ZOCOR [Concomitant]
     Dates: start: 20060101
  5. LIPITOR [Concomitant]
     Dates: start: 20060101
  6. LASIX [Concomitant]
     Dates: start: 20060101

REACTIONS (1)
  - MYOCARDIAL INFARCTION [None]
